FAERS Safety Report 24733778 (Version 1)
Quarter: 2024Q4

REPORT INFORMATION
  Report Type: Spontaneous
  Country: NL (occurrence: None)
  Receive Date: 20241214
  Receipt Date: 20241214
  Transmission Date: 20250115
  Serious: Yes (Other)
  Sender: NATCO PHARMA
  Company Number: NL-NATCOUSA-2024-NATCOUSA-000242

PATIENT
  Age: 74 Year
  Sex: Male

DRUGS (3)
  1. SUNITINIB MALATE [Suspect]
     Active Substance: SUNITINIB MALATE
     Indication: Metastatic renal cell carcinoma
     Dosage: ON THE STANDARD 4-WEEK ON 2-WEEK OFF SCHEDULE
  2. ACETAMINOPHEN [Concomitant]
     Active Substance: ACETAMINOPHEN
     Dosage: GRADUALLY INCREASED TO 80 MG/DAY
  3. PANTOPRAZOLE [Concomitant]
     Active Substance: PANTOPRAZOLE

REACTIONS (3)
  - Serous retinal detachment [Recovered/Resolved]
  - Visual acuity reduced [Recovered/Resolved]
  - Retinal oedema [Recovered/Resolved]
